FAERS Safety Report 13862642 (Version 2)
Quarter: 2017Q3

REPORT INFORMATION
  Report Type: Spontaneous
  Country: SA (occurrence: CA)
  Receive Date: 20170814
  Receipt Date: 20170825
  Transmission Date: 20171127
  Serious: No
  Sender: FDA-Public Use
  Company Number: SA-009507513-1707SAU007592

PATIENT
  Age: 31 Year
  Sex: Male

DRUGS (3)
  1. POSANOL [Suspect]
     Active Substance: POSACONAZOLE
     Indication: INFECTION
     Dosage: 300 MG, EVERY 12 HOURS
     Route: 042
  2. POSANOL [Suspect]
     Active Substance: POSACONAZOLE
     Indication: INFECTION
     Dosage: 400 MG, TWICE DAILY
     Route: 048
  3. POSANOL [Suspect]
     Active Substance: POSACONAZOLE
     Indication: INFECTION
     Dosage: 300 MG, TWICE DAILY
     Route: 048

REACTIONS (1)
  - Eosinophilia [Recovered/Resolved]
